FAERS Safety Report 13944206 (Version 1)
Quarter: 2017Q3

REPORT INFORMATION
  Report Type: Spontaneous
  Country: US (occurrence: US)
  Receive Date: 20170907
  Receipt Date: 20170907
  Transmission Date: 20171128
  Serious: No
  Sender: FDA-Public Use
  Company Number: US-ROCHE-1315393

PATIENT
  Sex: Female

DRUGS (3)
  1. ASPIRIN. [Concomitant]
     Active Substance: ASPIRIN
  2. RITUXAN [Suspect]
     Active Substance: RITUXIMAB
     Indication: RHEUMATOID ARTHRITIS
     Route: 065
     Dates: start: 2012
  3. ALEVE [Concomitant]
     Active Substance: NAPROXEN SODIUM

REACTIONS (28)
  - Fracture [Not Recovered/Not Resolved]
  - Chest discomfort [Unknown]
  - Movement disorder [Unknown]
  - Aphasia [Unknown]
  - Fatigue [Not Recovered/Not Resolved]
  - Bone disorder [Unknown]
  - Weight increased [Unknown]
  - Chest pain [Unknown]
  - Fatigue [Not Recovered/Not Resolved]
  - Pelvic fracture [Unknown]
  - Loss of personal independence in daily activities [Unknown]
  - Mental impairment [Unknown]
  - Malaise [Unknown]
  - Vomiting [Unknown]
  - Dizziness [Unknown]
  - Bone pain [Unknown]
  - Mental disorder [Unknown]
  - Asthenia [Unknown]
  - Rheumatoid arthritis [Unknown]
  - Headache [Unknown]
  - Feeling abnormal [Unknown]
  - Sensory disturbance [Unknown]
  - Cerebral disorder [Not Recovered/Not Resolved]
  - Decreased interest [Not Recovered/Not Resolved]
  - Depression [Unknown]
  - Back pain [Unknown]
  - Vertigo [Unknown]
  - Weight decreased [Unknown]

NARRATIVE: CASE EVENT DATE: 2012
